FAERS Safety Report 15169888 (Version 4)
Quarter: 2018Q3

REPORT INFORMATION
  Report Type: Report from Study
  Country: US (occurrence: US)
  Receive Date: 20180720
  Receipt Date: 20180822
  Transmission Date: 20181010
  Serious: Yes (Hospitalization, Other)
  Sender: FDA-Public Use
  Company Number: US-GILEAD-2018-0348072

PATIENT
  Age: 57 Year
  Sex: Male

DRUGS (5)
  1. REMODULIN [Suspect]
     Active Substance: TREPROSTINIL
     Indication: PRODUCT USED FOR UNKNOWN INDICATION
     Dosage: 3.45 NG/KG/MIN
     Route: 042
     Dates: start: 201807
  2. REMODULIN [Suspect]
     Active Substance: TREPROSTINIL
     Dosage: 9.5 NG/KG/MIN
     Route: 042
     Dates: start: 201807
  3. DIAMOX SEQUELS [Suspect]
     Active Substance: ACETAZOLAMIDE
     Indication: EYE DISORDER
     Route: 065
  4. ADCIRCA [Concomitant]
     Active Substance: TADALAFIL
  5. AMBRISENTAN [Suspect]
     Active Substance: AMBRISENTAN
     Indication: PRODUCT USED FOR UNKNOWN INDICATION
     Dosage: 10 MG, QD
     Route: 065
     Dates: start: 20160125

REACTIONS (13)
  - Pain in extremity [Not Recovered/Not Resolved]
  - Hypotension [Unknown]
  - Malaise [Unknown]
  - Nausea [Unknown]
  - Hypoxia [Unknown]
  - Catheterisation cardiac abnormal [Unknown]
  - Visual impairment [Unknown]
  - Catheterisation cardiac [Unknown]
  - Sinus headache [Not Recovered/Not Resolved]
  - Loss of consciousness [Recovered/Resolved]
  - Bradycardia [Unknown]
  - Abdominal discomfort [Not Recovered/Not Resolved]
  - Diarrhoea [Not Recovered/Not Resolved]

NARRATIVE: CASE EVENT DATE: 201802
